FAERS Safety Report 7961545 (Version 2)
Quarter: 2014Q1

REPORT INFORMATION
  Report Type: Spontaneous
  Country: US (occurrence: US)
  Receive Date: 20110526
  Receipt Date: 20140205
  Transmission Date: 20141002
  Serious: Yes (Hospitalization)
  Sender: FDA-Public Use
  Company Number: US-RANBAXY-2011US-44632

PATIENT
  Age: 39 Year
  Sex: Female

DRUGS (2)
  1. NORTRIPTYLINE HYDROCHLORIDE [Suspect]
     Indication: PRODUCT USED FOR UNKNOWN INDICATION
     Dosage: UNK
     Route: 065
  2. BUPIVACAINE [Suspect]
     Indication: PAIN
     Dosage: UNK
     Route: 008

REACTIONS (4)
  - Mental impairment [Unknown]
  - Tremor [Unknown]
  - Respiratory distress [Unknown]
  - Toxicity to various agents [Unknown]
